FAERS Safety Report 4321508-3 (Version None)
Quarter: 2004Q1

REPORT INFORMATION
  Report Type: 
  Country: None (occurrence: None)
  Receive Date: 20040322
  Receipt Date: 20030603
  Transmission Date: 20041129
  Serious: No
  Sender: FDA-Public Use
  Company Number: US-BRISTOL-MYERS SQUIBB COMPANY-12317137

PATIENT
  Sex: Female

DRUGS (3)
  1. VAGISTAT-1 [Suspect]
     Indication: VAGINAL MYCOSIS
     Route: 067
     Dates: start: 20030602, end: 20030602
  2. LEVORA 0.15/30-21 [Concomitant]
  3. PRILOSEC [Concomitant]

REACTIONS (2)
  - VAGINAL BURNING SENSATION [None]
  - VAGINAL SWELLING [None]
